FAERS Safety Report 8815486 (Version 3)
Quarter: 2012Q4

REPORT INFORMATION
  Report Type: 
  Country: IE (occurrence: IE)
  Receive Date: 20120928
  Receipt Date: 20121205
  Transmission Date: 20130627
  Serious: Yes (Other)
  Sender: FDA-Public Use
  Company Number: IE-GLAXOSMITHKLINE-B0782150A

PATIENT
  Sex: Female

DRUGS (2)
  1. FLIXONASE [Suspect]
     Indication: ACUTE SINUSITIS
     Dosage: 50MCG Twice per day
     Route: 045
     Dates: start: 20110812
  2. KLACID [Concomitant]
     Indication: ACUTE SINUSITIS
     Dates: start: 20110812

REACTIONS (3)
  - Anosmia [Recovering/Resolving]
  - Ageusia [Recovered/Resolved]
  - Hyposmia [Recovering/Resolving]
